FAERS Safety Report 23858510 (Version 1)
Quarter: 2024Q2

REPORT INFORMATION
  Report Type: Report from Study
  Country: CA (occurrence: CA)
  Receive Date: 20240515
  Receipt Date: 20240515
  Transmission Date: 20240716
  Serious: Yes (Other)
  Sender: FDA-Public Use
  Company Number: CA-SANDOZ-SDZ2023CA036234

PATIENT
  Sex: Female

DRUGS (1)
  1. ERELZI [Suspect]
     Active Substance: ETANERCEPT-SZZS
     Indication: Rheumatoid arthritis
     Dosage: 50 MG; PRE-FILLED PEN
     Route: 058
     Dates: start: 20230927

REACTIONS (7)
  - Rheumatoid arthritis [Unknown]
  - Chest discomfort [Unknown]
  - Feeling abnormal [Unknown]
  - Dizziness [Unknown]
  - Injection site pain [Unknown]
  - Injection site reaction [Unknown]
  - Pruritus [Unknown]
